FAERS Safety Report 6611167-9 (Version None)
Quarter: 2010Q1

REPORT INFORMATION
  Report Type: 
  Country: None (occurrence: None)
  Receive Date: 20100303
  Receipt Date: 20100217
  Transmission Date: 20100710
  Serious: Yes (Hospitalization, Other)
  Sender: FDA-Public Use
  Company Number: US-CELGENEUS-163-21880-09110167

PATIENT
  Sex: Male

DRUGS (7)
  1. REVLIMID [Suspect]
     Indication: MYELOFIBROSIS
     Route: 048
     Dates: start: 20090801, end: 20090901
  2. MEPHYTON [Concomitant]
     Indication: THROMBOCYTOPENIA
     Route: 048
     Dates: end: 20091022
  3. FLOMAX [Concomitant]
     Route: 048
  4. PANTOPRAZOLE [Concomitant]
     Route: 048
  5. MEGESTROL [Concomitant]
     Dosage: 10ML/400MG
     Route: 048
  6. ZYPREXA [Concomitant]
     Indication: SCHIZOAFFECTIVE DISORDER
     Route: 048
  7. DEPAKOTE [Concomitant]
     Indication: DRUG USE FOR UNKNOWN INDICATION
     Route: 048

REACTIONS (7)
  - ANAEMIA [None]
  - FEBRILE NEUTROPENIA [None]
  - HAEMOGLOBINURIA [None]
  - HAEMOLYSIS [None]
  - PANCYTOPENIA [None]
  - RENAL FAILURE ACUTE [None]
  - RENAL TUBULAR NECROSIS [None]
